FAERS Safety Report 18336503 (Version 1)
Quarter: 2020Q4

REPORT INFORMATION
  Report Type: Spontaneous
  Country: FR (occurrence: FR)
  Receive Date: 20201001
  Receipt Date: 20201001
  Transmission Date: 20210113
  Serious: Yes (Death, Hospitalization)
  Sender: FDA-Public Use
  Company Number: FR-B.I. PHARMACEUTICALS,INC./RIDGEFIELD-2020-BI-044467

PATIENT
  Age: 93 Year
  Sex: Female
  Weight: 48 kg

DRUGS (2)
  1. DIGOXINE [Concomitant]
     Active Substance: DIGOXIN
  2. PRADAXA [Suspect]
     Active Substance: DABIGATRAN ETEXILATE MESYLATE
     Indication: ATRIAL FIBRILLATION
     Route: 048
     Dates: start: 20200701, end: 20200816

REACTIONS (11)
  - Dysphagia [Unknown]
  - Eating disorder [Unknown]
  - Oedema mouth [Unknown]
  - Contusion [Unknown]
  - Haemorrhage [Unknown]
  - Pleural disorder [Unknown]
  - Anaemia [Unknown]
  - Pyrexia [Unknown]
  - Lip swelling [Unknown]
  - General physical health deterioration [Fatal]
  - Chromaturia [Unknown]

NARRATIVE: CASE EVENT DATE: 202007
